FAERS Safety Report 9953065 (Version 1)
Quarter: 2014Q1

REPORT INFORMATION
  Report Type: Report from Study
  Country: US (occurrence: US)
  Receive Date: 20140304
  Receipt Date: 20140304
  Transmission Date: 20141002
  Serious: No
  Sender: FDA-Public Use
  Company Number: US-ABBVIE-13P-163-1076326-00

PATIENT
  Age: 57 Year
  Sex: Female
  Weight: 65.83 kg

DRUGS (1)
  1. HUMIRA [Suspect]
     Indication: PSORIASIS
     Dates: start: 201009

REACTIONS (3)
  - Hypersensitivity [Unknown]
  - Asthma [Recovered/Resolved]
  - Seasonal allergy [Recovered/Resolved]
